FAERS Safety Report 25427944 (Version 1)
Quarter: 2025Q2

REPORT INFORMATION
  Report Type: Spontaneous
  Country: US (occurrence: US)
  Receive Date: 20250612
  Receipt Date: 20250612
  Transmission Date: 20250716
  Serious: Yes (Other)
  Sender: MYLAN
  Company Number: US-MYLANLABS-2025M1049454

PATIENT
  Age: 81 Year
  Sex: Male

DRUGS (20)
  1. VORICONAZOLE [Suspect]
     Active Substance: VORICONAZOLE
     Indication: Acanthamoeba infection
  2. VORICONAZOLE [Suspect]
     Active Substance: VORICONAZOLE
     Route: 065
  3. VORICONAZOLE [Suspect]
     Active Substance: VORICONAZOLE
     Route: 065
  4. VORICONAZOLE [Suspect]
     Active Substance: VORICONAZOLE
  5. SULFADIAZINE [Suspect]
     Active Substance: SULFADIAZINE
     Indication: Acanthamoeba infection
     Dosage: 1500 MILLIGRAM, Q6H
  6. SULFADIAZINE [Suspect]
     Active Substance: SULFADIAZINE
     Dosage: 1500 MILLIGRAM, Q6H
     Route: 065
  7. SULFADIAZINE [Suspect]
     Active Substance: SULFADIAZINE
     Dosage: 1500 MILLIGRAM, Q6H
     Route: 065
  8. SULFADIAZINE [Suspect]
     Active Substance: SULFADIAZINE
     Dosage: 1500 MILLIGRAM, Q6H
  9. MILTEFOSINE [Suspect]
     Active Substance: MILTEFOSINE
     Indication: Acanthamoeba infection
     Dosage: 50 MILLIGRAM, TID (THREE TIMES DAILY)
  10. MILTEFOSINE [Suspect]
     Active Substance: MILTEFOSINE
     Dosage: 50 MILLIGRAM, TID (THREE TIMES DAILY)
     Route: 065
  11. MILTEFOSINE [Suspect]
     Active Substance: MILTEFOSINE
     Dosage: 50 MILLIGRAM, TID (THREE TIMES DAILY)
     Route: 065
  12. MILTEFOSINE [Suspect]
     Active Substance: MILTEFOSINE
     Dosage: 50 MILLIGRAM, TID (THREE TIMES DAILY)
  13. FLUCYTOSINE [Suspect]
     Active Substance: FLUCYTOSINE
     Indication: Acanthamoeba infection
     Dosage: 2000 MILLIGRAM, QD
  14. FLUCYTOSINE [Suspect]
     Active Substance: FLUCYTOSINE
     Dosage: 2000 MILLIGRAM, QD
     Route: 065
  15. FLUCYTOSINE [Suspect]
     Active Substance: FLUCYTOSINE
     Dosage: 2000 MILLIGRAM, QD
     Route: 065
  16. FLUCYTOSINE [Suspect]
     Active Substance: FLUCYTOSINE
     Dosage: 2000 MILLIGRAM, QD
  17. Immunoglobulin [Concomitant]
     Indication: Hypogammaglobulinaemia
  18. Immunoglobulin [Concomitant]
     Route: 042
  19. Immunoglobulin [Concomitant]
     Route: 042
  20. Immunoglobulin [Concomitant]

REACTIONS (2)
  - Drug ineffective for unapproved indication [Unknown]
  - Off label use [Unknown]
